FAERS Safety Report 6236858-3 (Version None)
Quarter: 2009Q2

REPORT INFORMATION
  Report Type: 
  Country: None (occurrence: None)
  Receive Date: 20090619
  Receipt Date: 20090610
  Transmission Date: 20091009
  Serious: Yes (Other)
  Sender: FDA-Public Use
  Company Number: US-JNJFOC-20090603967

PATIENT
  Age: 62 Year
  Sex: Female
  Weight: 64.41 kg

DRUGS (1)
  1. TYLENOL SINUS CONGESTION + PAIN SEVERE COOL BURST [Suspect]
     Indication: HYPERSENSITIVITY
     Dosage: TOOK ^1 DOSE^
     Route: 048

REACTIONS (4)
  - ALTERED STATE OF CONSCIOUSNESS [None]
  - DISORIENTATION [None]
  - DIZZINESS [None]
  - NAUSEA [None]
